FAERS Safety Report 11717101 (Version 1)
Quarter: 2015Q4

REPORT INFORMATION
  Report Type: Spontaneous
  Country: BR (occurrence: BR)
  Receive Date: 20151109
  Receipt Date: 20151109
  Transmission Date: 20160304
  Serious: Yes (Other)
  Sender: FDA-Public Use
  Company Number: BR-ELI_LILLY_AND_COMPANY-BR201509004273

PATIENT
  Age: 52 Year
  Sex: Male
  Weight: 77 kg

DRUGS (5)
  1. CIALIS [Suspect]
     Active Substance: TADALAFIL
     Indication: ERECTILE DYSFUNCTION
     Dosage: UNK, UNKNOWN
     Route: 065
  2. TADALAFILA [Suspect]
     Active Substance: TADALAFIL
     Dosage: 5 MG, EACH MORNING
     Route: 048
     Dates: start: 201508
  3. OMEPRAZOL                          /00661201/ [Concomitant]
     Active Substance: OMEPRAZOLE
     Indication: GASTRIC DISORDER
     Dosage: UNK, UNKNOWN
     Route: 065
  4. TADALAFILA [Suspect]
     Active Substance: TADALAFIL
     Indication: PROSTATIC OPERATION
     Dosage: 5 MG, EACH MORNING
     Route: 048
  5. TADALAFILA [Suspect]
     Active Substance: TADALAFIL
     Indication: ERECTILE DYSFUNCTION
     Dosage: 5 MG, UNKNOWN
     Route: 048

REACTIONS (4)
  - Prostate cancer [Unknown]
  - Drug ineffective [Unknown]
  - Feeling hot [Recovered/Resolved]
  - Headache [Recovered/Resolved]
